FAERS Safety Report 7862911-4 (Version None)
Quarter: 2011Q4

REPORT INFORMATION
  Report Type: 
  Country: None (occurrence: None)
  Receive Date: 20111027
  Receipt Date: 20101118
  Transmission Date: 20120403
  Serious: Yes (Other)
  Sender: FDA-Public Use
  Company Number: US-AMGEN-USASP2010005471

PATIENT
  Sex: Male

DRUGS (1)
  1. ENBREL [Suspect]
     Indication: RHEUMATOID ARTHRITIS
     Dates: start: 20070701

REACTIONS (3)
  - SQUAMOUS CELL CARCINOMA OF SKIN [None]
  - INJECTION SITE DISCOMFORT [None]
  - BASAL CELL CARCINOMA [None]
